FAERS Safety Report 23801451 (Version 1)
Quarter: 2024Q2

REPORT INFORMATION
  Report Type: Spontaneous
  Country: US (occurrence: US)
  Receive Date: 20240430
  Receipt Date: 20240430
  Transmission Date: 20240716
  Serious: No
  Sender: FDA-Public Use
  Company Number: US-SA-SAC20240425001260

PATIENT
  Age: 5 Year
  Sex: Female
  Weight: 19.68 kg

DRUGS (3)
  1. DUPIXENT [Suspect]
     Active Substance: DUPILUMAB
     Indication: Dermatitis atopic
     Dosage: 300 MG, QM
     Route: 058
     Dates: start: 20240301
  2. FISH OIL [Concomitant]
     Active Substance: FISH OIL
     Dosage: 100-160 MG
  3. AUVI-Q [Concomitant]
     Active Substance: EPINEPHRINE
     Dosage: 0.15/0.15 AUTO INJCT

REACTIONS (4)
  - Eyelid margin crusting [Not Recovered/Not Resolved]
  - Eye pain [Unknown]
  - Skin discolouration [Unknown]
  - Eye irritation [Not Recovered/Not Resolved]

NARRATIVE: CASE EVENT DATE: 20240101
